FAERS Safety Report 6820018-9 (Version None)
Quarter: 2010Q2

REPORT INFORMATION
  Report Type: 
  Country: None (occurrence: None)
  Receive Date: 20100630
  Receipt Date: 20100621
  Transmission Date: 20101027
  Serious: Yes (Other)
  Sender: FDA-Public Use
  Company Number: 002185

PATIENT
  Sex: Male

DRUGS (6)
  1. LACOSAMIDE [Suspect]
     Indication: EPILEPSY
     Dosage: (ORAL)
     Route: 048
     Dates: start: 20090519, end: 20090922
  2. ACETAMINOPHEN [Concomitant]
  3. EXCEDRIN (MIGRAINE) [Concomitant]
  4. VITAMIN B6 [Concomitant]
  5. MAGNESIUM [Concomitant]
  6. CLARITIN /00917501/ [Concomitant]

REACTIONS (1)
  - DRUG ERUPTION [None]
